FAERS Safety Report 8452624-2 (Version None)
Quarter: 2012Q2

REPORT INFORMATION
  Report Type: 
  Country: None (occurrence: None)
  Receive Date: 20120620
  Receipt Date: 20120616
  Transmission Date: 20120825
  Serious: Yes (Other)
  Sender: FDA-Public Use
  Company Number: PHHY2012MX052192

PATIENT
  Sex: Female

DRUGS (2)
  1. CALCIUM CARBONATE [Concomitant]
  2. ZOLEDRONOC ACID [Suspect]
     Indication: OSTEOPOROSIS
     Dosage: 5 MG / 100 ML, EACH YEAR
     Route: 042
     Dates: start: 20090325

REACTIONS (4)
  - MALAISE [None]
  - FEMUR FRACTURE [None]
  - FALL [None]
  - PYREXIA [None]
